FAERS Safety Report 16791598 (Version 2)
Quarter: 2019Q3

REPORT INFORMATION
  Report Type: Spontaneous
  Country: JP (occurrence: JP)
  Receive Date: 20190910
  Receipt Date: 20190920
  Transmission Date: 20191005
  Serious: Yes (Death)
  Sender: FDA-Public Use
  Company Number: JP-ALLERGAN-1936436US

PATIENT
  Sex: Male

DRUGS (10)
  1. TRAMCET [Concomitant]
     Active Substance: ACETAMINOPHEN\TRAMADOL
     Indication: COMPRESSION FRACTURE
     Dosage: 4 DF, QD
     Route: 048
     Dates: end: 20190816
  2. MICAMLO [Concomitant]
     Active Substance: AMLODIPINE BESYLATE\TELMISARTAN
     Indication: HYPERTENSION
  3. SILODOSIN - BP [Suspect]
     Active Substance: SILODOSIN
     Indication: BENIGN PROSTATIC HYPERPLASIA
     Dosage: 4 MG, BID
     Route: 048
     Dates: start: 20190708, end: 20190816
  4. VITAMINS NOS [Concomitant]
     Active Substance: VITAMINS
     Dosage: 15 ?G, QD
     Route: 048
     Dates: end: 20190816
  5. LYRICA [Concomitant]
     Active Substance: PREGABALIN
     Dosage: 25 MG, QD
     Route: 048
     Dates: end: 20190816
  6. MICAMLO [Concomitant]
     Active Substance: AMLODIPINE BESYLATE\TELMISARTAN
     Indication: ARRHYTHMIA
     Dosage: 1 DF, QD
     Route: 048
     Dates: end: 20190816
  7. SILODOSIN - BP [Suspect]
     Active Substance: SILODOSIN
     Indication: DYSURIA
  8. EDIROL [Concomitant]
     Active Substance: ELDECALCITOL
     Indication: OSTEOPOROSIS
     Dosage: 0.75 ?G, QD
     Route: 048
     Dates: end: 20190816
  9. MUCOSTA [Concomitant]
     Active Substance: REBAMIPIDE
     Dosage: 200 MG, QD
     Route: 048
     Dates: end: 20190816
  10. BAYASPIRIN [Concomitant]
     Active Substance: ASPIRIN
     Dosage: 100 MG, QD
     Route: 048
     Dates: end: 20190816

REACTIONS (1)
  - Pulmonary alveolar haemorrhage [Fatal]

NARRATIVE: CASE EVENT DATE: 201907
